FAERS Safety Report 17027293 (Version 3)
Quarter: 2020Q1

REPORT INFORMATION
  Report Type: Spontaneous
  Country: US (occurrence: US)
  Receive Date: 20191113
  Receipt Date: 20200102
  Transmission Date: 20200409
  Serious: Yes (Other)
  Sender: FDA-Public Use
  Company Number: US-JNJFOC-20191105680

PATIENT
  Age: 51 Year

DRUGS (1)
  1. VISINE UNSPECIFIED [Suspect]
     Active Substance: TETRAHYDROZOLINE HYDROCHLORIDE
     Indication: PRODUCT USED FOR UNKNOWN INDICATION
     Route: 048

REACTIONS (4)
  - Poisoning deliberate [Unknown]
  - Cardiac disorder [Unknown]
  - Diarrhoea [Unknown]
  - Respiratory disorder [Unknown]
